FAERS Safety Report 6179494-X (Version None)
Quarter: 2009Q2

REPORT INFORMATION
  Report Type: 
  Country: None (occurrence: None)
  Receive Date: 20090505
  Receipt Date: 20090424
  Transmission Date: 20091009
  Serious: Yes (Other)
  Sender: FDA-Public Use
  Company Number: US-ROCHE-616101

PATIENT
  Sex: Female

DRUGS (2)
  1. PEG-INTERFERON A-2A (RO 25-8310) [Suspect]
     Indication: HEPATITIS C
     Dosage: IN WEEK 51
     Route: 065
     Dates: start: 20080411
  2. RIBAVIRIN [Suspect]
     Indication: HEPATITIS C
     Dosage: IN WEEK 55; DIVIDED DOSE
     Route: 065
     Dates: start: 20080411

REACTIONS (7)
  - DEAFNESS [None]
  - DIZZINESS [None]
  - ECZEMA [None]
  - FOOT FRACTURE [None]
  - HYPOAESTHESIA [None]
  - SKIN CANCER [None]
  - TINNITUS [None]
